FAERS Safety Report 17322946 (Version 1)
Quarter: 2020Q1

REPORT INFORMATION
  Report Type: Spontaneous
  Country: US (occurrence: US)
  Receive Date: 20200108
  Receipt Date: 20200108
  Transmission Date: 20200409
  Serious: Yes (Death)
  Sender: FDA-Public Use
  Company Number: None

PATIENT
  Age: 68 Year
  Sex: Female

DRUGS (18)
  1. SENNA-S [Concomitant]
     Active Substance: DOCUSATE SODIUM\SENNOSIDES
  2. TRUSPOT OPHT DROP [Concomitant]
  3. GABAPENTIN. [Concomitant]
     Active Substance: GABAPENTIN
  4. ATORVASTATIN [Concomitant]
     Active Substance: ATORVASTATIN
  5. ASPIRIN. [Concomitant]
     Active Substance: ASPIRIN
  6. LEVOTHYROXINE. [Concomitant]
     Active Substance: LEVOTHYROXINE
  7. MEGESTROL [Concomitant]
     Active Substance: MEGESTROL
  8. METOPROLOL. [Concomitant]
     Active Substance: METOPROLOL
  9. METFORMIN [Concomitant]
     Active Substance: METFORMIN HYDROCHLORIDE
  10. PAROXETINE. [Concomitant]
     Active Substance: PAROXETINE
  11. OPSUMIT [Suspect]
     Active Substance: MACITENTAN
     Indication: PULMONARY ARTERIAL HYPERTENSION
     Route: 048
     Dates: start: 201610, end: 201911
  12. BENZONATATE. [Concomitant]
     Active Substance: BENZONATATE
  13. SILDENAFIL. [Concomitant]
     Active Substance: SILDENAFIL
  14. LISIONOPRIL [Concomitant]
     Active Substance: LISINOPRIL
  15. XALATAN OPHT DROP [Concomitant]
  16. OXYCODONE [Concomitant]
     Active Substance: OXYCODONE
  17. COLCHICINE. [Concomitant]
     Active Substance: COLCHICINE
  18. ALPHAGAN OPHT DROP [Concomitant]

REACTIONS (2)
  - Therapy cessation [None]
  - Disease progression [None]

NARRATIVE: CASE EVENT DATE: 20191212
